FAERS Safety Report 9634076 (Version 2)
Quarter: 2013Q4

REPORT INFORMATION
  Report Type: Spontaneous
  Country: AU (occurrence: AU)
  Receive Date: 20131021
  Receipt Date: 20131021
  Transmission Date: 20140711
  Serious: Yes (Life-Threatening, Hospitalization)
  Sender: FDA-Public Use
  Company Number: AU-B.I. PHARMACEUTICALS,INC./RIDGEFIELD-2013-BI-32082AU

PATIENT
  Age: 90 Year
  Sex: Male

DRUGS (1)
  1. PRADAXA [Suspect]
     Dosage: 220 MG
     Dates: start: 201307

REACTIONS (4)
  - Rectal haemorrhage [Recovered/Resolved]
  - Renal failure acute [Recovered/Resolved]
  - Hepatic enzyme increased [Unknown]
  - Biliary tract disorder [Unknown]
